FAERS Safety Report 9210193 (Version 2)
Quarter: 2013Q2

REPORT INFORMATION
  Report Type: Spontaneous
  Country: GB (occurrence: GB)
  Receive Date: 20130404
  Receipt Date: 20130415
  Transmission Date: 20140414
  Serious: Yes (Hospitalization)
  Sender: FDA-Public Use
  Company Number: GB-PFIZER INC-GBWYE235414DEC05

PATIENT
  Age: 44 Year
  Sex: Female

DRUGS (5)
  1. IBUPROFEN [Suspect]
     Dosage: UNK
  2. VALPROATE SODIUM [Suspect]
     Dosage: UNK
  3. HYTRIN [Suspect]
     Dosage: UNK
     Route: 048
     Dates: start: 20050818
  4. CLOZAPINE [Suspect]
     Dosage: UNK
  5. BENZTROPINE MESYLATE [Suspect]
     Dosage: UNK

REACTIONS (3)
  - Pneumonia [Unknown]
  - Myoclonus [Not Recovered/Not Resolved]
  - Diarrhoea [Not Recovered/Not Resolved]
